FAERS Safety Report 7634166-7 (Version None)
Quarter: 2011Q3

REPORT INFORMATION
  Report Type: 
  Country: None (occurrence: None)
  Receive Date: 20110725
  Receipt Date: 20110718
  Transmission Date: 20111222
  Serious: Yes (Other)
  Sender: FDA-Public Use
  Company Number: US-TEVA-291279USA

PATIENT
  Age: 11 Year
  Sex: Male

DRUGS (4)
  1. VALPROIC ACID [Concomitant]
  2. L-CARNITINE [Concomitant]
  3. SENNA ALEXANDRINA LIQUID EXTRACT [Concomitant]
  4. AZITHROMYCIN [Suspect]
     Indication: INFLAMMATION
     Dosage: 200 MG EVERY OTHER DAY
     Route: 048

REACTIONS (1)
  - INTERNATIONAL NORMALISED RATIO INCREASED [None]
